FAERS Safety Report 12680316 (Version 1)
Quarter: 2016Q3

REPORT INFORMATION
  Report Type: Spontaneous
  Country: US (occurrence: US)
  Receive Date: 20160824
  Receipt Date: 20160824
  Transmission Date: 20161109
  Serious: No
  Sender: FDA-Public Use
  Company Number: US-GLAXOSMITHKLINE-US2016GSK117671

PATIENT
  Age: 57 Year
  Sex: Female

DRUGS (2)
  1. TANZEUM [Suspect]
     Active Substance: ALBIGLUTIDE
     Dosage: 50 MG, WE
     Route: 065
     Dates: start: 20160723
  2. TANZEUM [Suspect]
     Active Substance: ALBIGLUTIDE
     Indication: TYPE 2 DIABETES MELLITUS
     Dosage: UNK UNK, U
     Route: 065
     Dates: start: 201511

REACTIONS (7)
  - Injection site erythema [Unknown]
  - Cystitis [Not Recovered/Not Resolved]
  - Injection site haemorrhage [Unknown]
  - Injection site discolouration [Unknown]
  - Injection site rash [Unknown]
  - Injection site pain [Unknown]
  - Injection site reaction [Unknown]

NARRATIVE: CASE EVENT DATE: 201511
